FAERS Safety Report 7548037-8 (Version None)
Quarter: 2011Q2

REPORT INFORMATION
  Report Type: 
  Country: None (occurrence: None)
  Receive Date: 20110524
  Receipt Date: 20110304
  Transmission Date: 20111010
  Serious: No
  Sender: FDA-Public Use
  Company Number: 026627

PATIENT
  Sex: Female

DRUGS (1)
  1. CIMZIA [Suspect]
     Indication: COLITIS ULCERATIVE
     Dosage: SUBCUTANEOUS
     Route: 058
     Dates: start: 20101108

REACTIONS (4)
  - APPLICATION SITE HAEMATOMA [None]
  - INJECTION SITE HAEMORRHAGE [None]
  - PREGNANCY [None]
  - NASOPHARYNGITIS [None]
